FAERS Safety Report 9068624 (Version 1)
Quarter: 2013Q1

REPORT INFORMATION
  Report Type: Spontaneous
  Country: US (occurrence: None)
  Receive Date: 20130212
  Receipt Date: 20130212
  Transmission Date: 20140127
  Serious: Yes (Hospitalization)
  Sender: FDA-Public Use
  Company Number: None

PATIENT
  Age: 59 Year
  Sex: Male

DRUGS (1)
  1. GLEEVEC [Suspect]
     Dosage: 400 MG DAILY PO
     Route: 048
     Dates: start: 20121106, end: 20130207

REACTIONS (2)
  - Epistaxis [None]
  - Vitreous haemorrhage [None]
